FAERS Safety Report 17427726 (Version 3)
Quarter: 2021Q4

REPORT INFORMATION
  Report Type: Report from Study
  Country: None (occurrence: CA)
  Receive Date: 20200217
  Receipt Date: 20211001
  Transmission Date: 20220303
  Serious: Yes (Other)
  Sender: FDA-Public Use
  Company Number: CA-JNJFOC-20190905644

PATIENT
  Age: 57 Year
  Sex: Male

DRUGS (1)
  1. IMBRUVICA [Suspect]
     Active Substance: IBRUTINIB
     Indication: Waldenstrom^s macroglobulinaemia
     Dosage: STRENGTH = 140 MG
     Route: 048
     Dates: start: 20161005

REACTIONS (6)
  - Pancreatitis [Recovered/Resolved]
  - Neuropathy peripheral [Unknown]
  - Skin discolouration [Unknown]
  - Faeces discoloured [Unknown]
  - Blood blister [Unknown]
  - Nasal congestion [Unknown]

NARRATIVE: CASE EVENT DATE: 20190801
